FAERS Safety Report 7122892-8 (Version None)
Quarter: 2010Q4

REPORT INFORMATION
  Report Type: 
  Country: None (occurrence: None)
  Receive Date: 20101124
  Receipt Date: 20101112
  Transmission Date: 20110411
  Serious: Yes (Hospitalization)
  Sender: FDA-Public Use
  Company Number: JP-ABBOTT-10P-087-0687548-00

PATIENT
  Age: 74 Year
  Sex: Male

DRUGS (5)
  1. LEUPROLIDE ACETATE [Suspect]
     Indication: PROSTATE CANCER STAGE III
     Route: 058
     Dates: start: 20080730, end: 20080730
  2. LEUPROLIDE ACETATE [Suspect]
     Route: 058
     Dates: start: 20081217, end: 20090318
  3. LEUPROLIDE ACETATE [Suspect]
     Indication: PROSTATE CANCER STAGE III
     Route: 058
     Dates: start: 20080213
  4. LEUPROLIDE ACETATE [Suspect]
     Route: 058
     Dates: start: 20081022
  5. BICALUTAMIDE [Concomitant]
     Indication: PROSTATE CANCER STAGE III
     Route: 048
     Dates: start: 20080213

REACTIONS (1)
  - GASTRIC CANCER STAGE IV [None]
